FAERS Safety Report 7417486-0 (Version None)
Quarter: 2011Q2

REPORT INFORMATION
  Report Type: 
  Country: None (occurrence: None)
  Receive Date: 20110415
  Receipt Date: 20110411
  Transmission Date: 20111010
  Serious: Yes (Death)
  Sender: FDA-Public Use
  Company Number: US-B.I. PHARMACEUTICALS,INC./RIDGEFIELD-2011-BP-03360BP

PATIENT
  Age: 78 Year
  Sex: Female
  Weight: 60.78 kg

DRUGS (5)
  1. ACEBUTOLOL [Concomitant]
     Dosage: 400 MG
     Dates: start: 20081222, end: 20110204
  2. TRICOR [Concomitant]
     Dosage: 145 MG
     Dates: start: 20060103
  3. PRAVACHOL [Concomitant]
     Dosage: 40 MG
     Dates: start: 20100122
  4. ISOSORBIDE DINITRATE [Concomitant]
     Dosage: 40 MG
     Dates: start: 20110103
  5. PRADAXA [Suspect]
     Indication: ATRIAL FIBRILLATION
     Dosage: 150 MG
     Dates: start: 20110131

REACTIONS (1)
  - DEATH [None]
